FAERS Safety Report 14347748 (Version 1)
Quarter: 2018Q1

REPORT INFORMATION
  Report Type: Spontaneous
  Country: IT (occurrence: IT)
  Receive Date: 20180103
  Receipt Date: 20180103
  Transmission Date: 20180509
  Serious: Yes (Other)
  Sender: FDA-Public Use
  Company Number: IT-MYLANLABS-2017M1083081

PATIENT
  Age: 78 Year
  Sex: Male

DRUGS (18)
  1. LEVOTHYROXINE. [Suspect]
     Active Substance: LEVOTHYROXINE
     Indication: PRODUCT USED FOR UNKNOWN INDICATION
     Dosage: UNK
  2. VALSARTAN. [Suspect]
     Active Substance: VALSARTAN
     Indication: PRODUCT USED FOR UNKNOWN INDICATION
     Dosage: 320 MG, QD
  3. FUROSEMIDE. [Suspect]
     Active Substance: FUROSEMIDE
     Dosage: 20 MG, QD
     Route: 065
  4. DILATREND [Suspect]
     Active Substance: CARVEDILOL
     Dosage: 37.5 MG, QD
     Route: 065
  5. DILATREND [Suspect]
     Active Substance: CARVEDILOL
     Dosage: 6.25 MG, QD
     Route: 065
  6. SPIRONOLACTONE. [Suspect]
     Active Substance: SPIRONOLACTONE
     Indication: PRODUCT USED FOR UNKNOWN INDICATION
  7. DILATREND [Suspect]
     Active Substance: CARVEDILOL
     Dosage: 50 MG, QD
     Route: 065
  8. RIVAROXABAN [Suspect]
     Active Substance: RIVAROXABAN
     Dosage: 15 MG, QD
     Route: 065
  9. FUROSEMIDE. [Suspect]
     Active Substance: FUROSEMIDE
     Indication: PRODUCT USED FOR UNKNOWN INDICATION
     Dosage: 40 MG, QD
  10. IRBESARTAN. [Suspect]
     Active Substance: IRBESARTAN
     Indication: PRODUCT USED FOR UNKNOWN INDICATION
     Dosage: 150 MG, QD
  11. RIVAROXABAN [Suspect]
     Active Substance: RIVAROXABAN
     Indication: PRODUCT USED FOR UNKNOWN INDICATION
     Dosage: 20 MG, QD
  12. ROSUVASTATIN. [Suspect]
     Active Substance: ROSUVASTATIN
     Dosage: 10 MG, QD
     Route: 065
  13. TIOTROPIUM [Suspect]
     Active Substance: TIOTROPIUM
     Indication: PRODUCT USED FOR UNKNOWN INDICATION
     Dosage: UNK, QD
  14. DILATREND [Suspect]
     Active Substance: CARVEDILOL
     Indication: PRODUCT USED FOR UNKNOWN INDICATION
     Dosage: 25 MG, QD
  15. DILATREND [Suspect]
     Active Substance: CARVEDILOL
     Dosage: 12.5 MG, QD
     Route: 065
  16. ROSUVASTATIN. [Suspect]
     Active Substance: ROSUVASTATIN
     Dosage: 40 MG, QD
     Route: 065
  17. DILATREND [Suspect]
     Active Substance: CARVEDILOL
     Dosage: 18.75 MG, QD
     Route: 065
  18. ROSUVASTATIN. [Suspect]
     Active Substance: ROSUVASTATIN
     Indication: PRODUCT USED FOR UNKNOWN INDICATION
     Dosage: 20 MG, QD

REACTIONS (31)
  - Left ventricular dilatation [Unknown]
  - Blood thyroid stimulating hormone abnormal [Unknown]
  - Dyslipidaemia [Unknown]
  - Dyspnoea [Unknown]
  - Conduction disorder [Unknown]
  - Bundle branch block left [Unknown]
  - Hypertension [Unknown]
  - Obstructive airways disorder [Unknown]
  - Chronic obstructive pulmonary disease [Unknown]
  - Cardiomegaly [Unknown]
  - Oedema peripheral [Unknown]
  - Mitral valve incompetence [Unknown]
  - Oxygen saturation increased [Unknown]
  - Bundle branch block right [Unknown]
  - Blood pressure increased [Unknown]
  - Fractured coccyx [Unknown]
  - C-reactive protein abnormal [Unknown]
  - Goitre [Unknown]
  - Cardiac failure chronic [Recovering/Resolving]
  - Thyroiditis [Unknown]
  - Type 2 diabetes mellitus [Unknown]
  - Ventricular hypokinesia [Unknown]
  - Brain natriuretic peptide abnormal [Unknown]
  - Tricuspid valve incompetence [Unknown]
  - Fall [Unknown]
  - N-terminal prohormone brain natriuretic peptide abnormal [Unknown]
  - Electrocardiogram QRS complex abnormal [Unknown]
  - Pulmonary arterial pressure abnormal [Unknown]
  - Atrial fibrillation [Unknown]
  - Ejection fraction decreased [Unknown]
  - Aortic aneurysm [Unknown]

NARRATIVE: CASE EVENT DATE: 20150722
